FAERS Safety Report 13341859 (Version 1)
Quarter: 2017Q1

REPORT INFORMATION
  Report Type: Spontaneous
  Country: US (occurrence: US)
  Receive Date: 20170316
  Receipt Date: 20170316
  Transmission Date: 20170428
  Serious: Yes (Other)
  Sender: FDA-Public Use
  Company Number: US-ROCHE-1854386

PATIENT
  Age: 10 Year
  Sex: Male
  Weight: 26.4 kg

DRUGS (2)
  1. ORLISTAT [Suspect]
     Active Substance: ORLISTAT
     Route: 065
  2. ORLISTAT [Suspect]
     Active Substance: ORLISTAT
     Indication: TYPE I HYPERLIPIDAEMIA
     Route: 065

REACTIONS (2)
  - Drug ineffective [Unknown]
  - No adverse event [Unknown]
